FAERS Safety Report 6831001-1 (Version None)
Quarter: 2010Q3

REPORT INFORMATION
  Report Type: 
  Country: None (occurrence: None)
  Receive Date: 20100712
  Receipt Date: 20100706
  Transmission Date: 20110219
  Serious: Yes (Death)
  Sender: FDA-Public Use
  Company Number: US-SANOFI-AVENTIS-2010SA039548

PATIENT
  Age: 59 Year
  Sex: Female
  Weight: 58.6 kg

DRUGS (4)
  1. ARAVA [Suspect]
     Route: 065
  2. ENBREL [Suspect]
     Indication: RHEUMATOID ARTHRITIS
     Route: 058
     Dates: start: 20071001, end: 20080501
  3. METHOTREXATE [Suspect]
     Route: 065
     Dates: start: 19970101, end: 20080101
  4. INFLIXIMAB [Suspect]
     Route: 065
     Dates: start: 20030801, end: 20070101

REACTIONS (1)
  - BILE DUCT CANCER [None]
